FAERS Safety Report 4646644-3 (Version None)
Quarter: 2005Q2

REPORT INFORMATION
  Report Type: 
  Country: None (occurrence: None)
  Receive Date: 20050427
  Receipt Date: 20040908
  Transmission Date: 20051028
  Serious: Yes (Hospitalization)
  Sender: FDA-Public Use
  Company Number: PHHO2004JP12752

PATIENT
  Age: 77 Year
  Sex: Female
  Weight: 50 kg

DRUGS (4)
  1. BUFFERIN [Concomitant]
     Indication: THROMBOSIS
  2. DEPROMEL [Concomitant]
     Indication: DEPRESSION
  3. SIGMART [Concomitant]
     Indication: ANGINA PECTORIS
  4. DIOVAN [Suspect]
     Dosage: 80 MG, QD
     Route: 048
     Dates: start: 20030307, end: 20031002

REACTIONS (4)
  - CHEST DISCOMFORT [None]
  - HYPERTENSIVE ENCEPHALOPATHY [None]
  - MYOCARDIAL ISCHAEMIA [None]
  - PALPITATIONS [None]
